FAERS Safety Report 9721218 (Version 1)
Quarter: 2013Q4

REPORT INFORMATION
  Report Type: Spontaneous
  Country: US (occurrence: US)
  Receive Date: 20131129
  Receipt Date: 20131129
  Transmission Date: 20140711
  Serious: Yes (Hospitalization, Other)
  Sender: FDA-Public Use
  Company Number: US-PFIZER INC-2013339838

PATIENT
  Age: 30 Year
  Sex: Female
  Weight: 59 kg

DRUGS (4)
  1. NEURONTIN [Suspect]
     Indication: FIBROMYALGIA
     Dosage: 400 MG, 3X/DAY
     Route: 048
     Dates: start: 2011, end: 2011
  2. NEURONTIN [Suspect]
     Indication: ANXIETY
  3. NEURONTIN [Suspect]
     Indication: FIBROMYALGIA
     Dosage: 800 MG, 2X/DAY
     Route: 048
     Dates: start: 2011
  4. NEURONTIN [Suspect]
     Indication: ANXIETY

REACTIONS (6)
  - Convulsion [Unknown]
  - Convulsion [Unknown]
  - Drug ineffective [Unknown]
  - Off label use [Unknown]
  - Drug ineffective for unapproved indication [Unknown]
  - Off label use [Unknown]
